FAERS Safety Report 10152705 (Version 7)
Quarter: 2014Q4

REPORT INFORMATION
  Report Type: Report from Study
  Country: UG (occurrence: UG)
  Receive Date: 20140505
  Receipt Date: 20141020
  Transmission Date: 20150528
  Serious: Yes (Life-Threatening, Hospitalization, Other)
  Sender: FDA-Public Use
  Company Number: UG-GILEAD-2014-0101150

PATIENT
  Age: 48 Year
  Sex: Female
  Weight: 61 kg

DRUGS (24)
  1. NORMAL SALINE [Concomitant]
     Active Substance: SODIUM CHLORIDE
     Indication: ROAD TRAFFIC ACCIDENT
  2. TETANUS TOXOID [Concomitant]
     Active Substance: CLOSTRIDIUM TETANI TOXOID ANTIGEN (FORMALDEHYDE INACTIVATED)
     Indication: SOFT TISSUE INJURY
     Dosage: DOSAGE FORM: UNSPECIFIED, 0.5 UNITS
     Route: 030
     Dates: start: 20140213, end: 20140213
  3. METRONIDAZOLE. [Concomitant]
     Active Substance: METRONIDAZOLE
     Indication: ROAD TRAFFIC ACCIDENT
  4. AMPICILLIN W/CLOXACILLIN [Concomitant]
     Indication: SOFT TISSUE INJURY
     Dosage: 500 MG, TID
     Route: 048
     Dates: start: 20140307, end: 20140313
  5. DICLOFENAC [Concomitant]
     Active Substance: DICLOFENAC
     Indication: SOFT TISSUE INJURY
     Dosage: 0.5 UNITS
     Route: 030
     Dates: start: 20140213, end: 20140214
  6. AMPICILLIN W/CLOXACILLIN [Concomitant]
     Indication: ROAD TRAFFIC ACCIDENT
  7. COTRIMOXAZOLE [Concomitant]
     Active Substance: SULFAMETHOXAZOLE\TRIMETHOPRIM
     Indication: OPPORTUNISTIC INFECTION
     Dosage: DOSAGE FORM: UNSPECIFIED
     Route: 048
     Dates: start: 20050916
  8. TETANUS TOXOID [Concomitant]
     Active Substance: CLOSTRIDIUM TETANI TOXOID ANTIGEN (FORMALDEHYDE INACTIVATED)
     Indication: PROPHYLAXIS
  9. DICLOFENAC [Concomitant]
     Active Substance: DICLOFENAC
     Dosage: 75 MG, TID
     Route: 030
     Dates: start: 20140224, end: 20140301
  10. AMPICILLIN W/CLOXACILLIN [Concomitant]
     Indication: LACRIMATION INCREASED
     Dosage: 500 MG, QID
     Route: 048
     Dates: start: 20140213, end: 20140218
  11. EMTRICITABINE/RILPIVIRINE/TENOFOVIR DF [Suspect]
     Active Substance: EMTRICITABINE\RILPIVIRINE\TENOFOVIR DISOPROXIL FUMARATE
     Dosage: 1 DF, QD
     Route: 048
     Dates: start: 20140214
  12. NORMAL SALINE [Concomitant]
     Active Substance: SODIUM CHLORIDE
     Indication: HEAD INJURY
     Dosage: DOSAGE FORM: UNSPECIFIED
     Route: 042
     Dates: start: 20140213, end: 20140213
  13. IBUPROFEN. [Concomitant]
     Active Substance: IBUPROFEN
     Indication: ROAD TRAFFIC ACCIDENT
  14. CHLORAMPHENICOL [Concomitant]
     Active Substance: CHLORAMPHENICOL
     Indication: VISION BLURRED
  15. EMTRICITABINE/RILPIVIRINE/TENOFOVIR DF [Suspect]
     Active Substance: EMTRICITABINE\RILPIVIRINE\TENOFOVIR DISOPROXIL FUMARATE
     Indication: HIV INFECTION
     Dosage: 1 DF, QD
     Route: 048
     Dates: start: 20140313
  16. TETANUS TOXOID [Concomitant]
     Active Substance: CLOSTRIDIUM TETANI TOXOID ANTIGEN (FORMALDEHYDE INACTIVATED)
     Indication: ROAD TRAFFIC ACCIDENT
  17. IBUPROFEN. [Concomitant]
     Active Substance: IBUPROFEN
     Indication: SOFT TISSUE INJURY
     Dosage: DOSAGE FORM: UNSPECIFIED, 0.5 UNITS
     Route: 048
     Dates: start: 20140213, end: 20140214
  18. DICLOFENAC [Concomitant]
     Active Substance: DICLOFENAC
     Indication: ROAD TRAFFIC ACCIDENT
     Dosage: 150 MG, ONCE
     Route: 030
     Dates: start: 20140214, end: 20140214
  19. METRONIDAZOLE. [Concomitant]
     Active Substance: METRONIDAZOLE
     Indication: SOFT TISSUE INJURY
     Dosage: DOSAGE FORM: UNSPECIFIED, 0.5 UNITS
     Route: 048
     Dates: start: 20140213, end: 20140213
  20. AMOXYCILLIN                        /00249601/ [Concomitant]
     Indication: SOFT TISSUE INJURY
     Dosage: 500 MG, TID
     Route: 048
     Dates: start: 20140224, end: 20140301
  21. PARACETAMOL [Concomitant]
     Active Substance: ACETAMINOPHEN
     Indication: LACRIMATION INCREASED
     Dosage: DOSAGE FORM: UNSPECIFIED
     Route: 048
     Dates: start: 20140307, end: 20140309
  22. AMOXYCILLIN                        /00249601/ [Concomitant]
     Indication: ROAD TRAFFIC ACCIDENT
  23. CHLORAMPHENICOL [Concomitant]
     Active Substance: CHLORAMPHENICOL
     Indication: LACRIMATION INCREASED
     Dosage: DOSAGE FORM: UNSPECIFIED, 2 DROPS THRICE DAILY
     Route: 047
     Dates: start: 20140307, end: 20140313
  24. PARACETAMOL [Concomitant]
     Active Substance: ACETAMINOPHEN
     Indication: VISION BLURRED

REACTIONS (2)
  - Hyperglycaemia [Recovered/Resolved]
  - Diabetes mellitus [Recovering/Resolving]

NARRATIVE: CASE EVENT DATE: 20140424
